FAERS Safety Report 18522705 (Version 3)
Quarter: 2020Q4

REPORT INFORMATION
  Report Type: Spontaneous
  Country: US (occurrence: US)
  Receive Date: 20201119
  Receipt Date: 20201201
  Transmission Date: 20210114
  Serious: No
  Sender: FDA-Public Use
  Company Number: US-AMGEN-USASP2020186309

PATIENT
  Age: 58 Year
  Sex: Female

DRUGS (10)
  1. ZOMIG [Concomitant]
     Active Substance: ZOLMITRIPTAN
  2. METOPROLOL. [Concomitant]
     Active Substance: METOPROLOL
  3. TOPIRAMATE. [Concomitant]
     Active Substance: TOPIRAMATE
  4. MULTIVITAMINS;MINERALS [Concomitant]
     Dosage: UNK
  5. OTEZLA [Suspect]
     Active Substance: APREMILAST
     Indication: PSORIASIS
     Dosage: 30 MILLIGRAM, BID
     Route: 048
     Dates: start: 20201013
  6. EZETIMIBE. [Concomitant]
     Active Substance: EZETIMIBE
  7. OLANZAPINE. [Concomitant]
     Active Substance: OLANZAPINE
  8. TALTZ [Concomitant]
     Active Substance: IXEKIZUMAB
     Dosage: UNK
  9. BLACK COHOSH [CIMICIFUGA RACEMOSA] [Concomitant]
     Active Substance: BLACK COHOSH
     Dosage: UNK
  10. FLUOXETINE [Concomitant]
     Active Substance: FLUOXETINE HYDROCHLORIDE

REACTIONS (2)
  - Psoriasis [Not Recovered/Not Resolved]
  - Arthritis [Not Recovered/Not Resolved]

NARRATIVE: CASE EVENT DATE: 2020
